FAERS Safety Report 7776431-9 (Version None)
Quarter: 2011Q3

REPORT INFORMATION
  Report Type: 
  Country: None (occurrence: None)
  Receive Date: 20110926
  Receipt Date: 20110919
  Transmission Date: 20111222
  Serious: Yes (Other)
  Sender: FDA-Public Use
  Company Number: US-PFIZER INC-2011222498

PATIENT
  Sex: Female
  Weight: 47.6 kg

DRUGS (7)
  1. PHENERGAN HCL [Interacting]
     Indication: NAUSEA
  2. LEVOTHYROXINE [Concomitant]
     Indication: HYPOTHYROIDISM
     Dosage: UNK
  3. PHENOBARBITAL [Concomitant]
     Indication: GRAND MAL CONVULSION
     Dosage: UNK
     Dates: start: 19570101, end: 19710101
  4. DILANTIN [Suspect]
     Indication: GRAND MAL CONVULSION
     Dosage: 100 MG, 1X/DAY
     Route: 048
     Dates: start: 19570101
  5. DILANTIN [Interacting]
     Indication: CONVULSION
  6. MEBARAL [Concomitant]
     Indication: GRAND MAL CONVULSION
     Dosage: UNK
     Dates: start: 19780101
  7. PHENERGAN HCL [Interacting]
     Indication: URINARY TRACT INFECTION
     Dosage: 5 ML, 3X/DAY
     Route: 048
     Dates: start: 20110207, end: 20110207

REACTIONS (9)
  - NAUSEA [None]
  - TREMOR [None]
  - GRAND MAL CONVULSION [None]
  - URINARY TRACT INFECTION [None]
  - IMPAIRED DRIVING ABILITY [None]
  - TOXICITY TO VARIOUS AGENTS [None]
  - RESPIRATORY ARREST [None]
  - IMPAIRED WORK ABILITY [None]
  - DRUG INTERACTION [None]
